FAERS Safety Report 17201213 (Version 1)
Quarter: 2019Q4

REPORT INFORMATION
  Report Type: Spontaneous
  Country: US (occurrence: US)
  Receive Date: 20191226
  Receipt Date: 20191226
  Transmission Date: 20200122
  Serious: Yes (Other)
  Sender: FDA-Public Use
  Company Number: NVSC2019US077605

PATIENT
  Sex: Female

DRUGS (2)
  1. GLEEVEC [Suspect]
     Active Substance: IMATINIB MESYLATE
     Indication: PRODUCT USED FOR UNKNOWN INDICATION
     Route: 065
  2. IMATINIB. [Suspect]
     Active Substance: IMATINIB MESYLATE
     Indication: PRODUCT USED FOR UNKNOWN INDICATION
     Dosage: 400 MG
     Route: 065

REACTIONS (10)
  - Renal failure [Unknown]
  - Nausea [Unknown]
  - Pain [Unknown]
  - Dyspepsia [Unknown]
  - Paraesthesia [Unknown]
  - Peripheral swelling [Unknown]
  - Eye swelling [Unknown]
  - Weight increased [Unknown]
  - Swelling face [Unknown]
  - Fatigue [Unknown]
